FAERS Safety Report 5259577-9 (Version None)
Quarter: 2007Q1

REPORT INFORMATION
  Report Type: 
  Country: None (occurrence: None)
  Receive Date: 20070306
  Receipt Date: 20070221
  Transmission Date: 20070707
  Serious: Yes (Other)
  Sender: FDA-Public Use
  Company Number: 20060199

PATIENT
  Age: 30 Year
  Sex: Female

DRUGS (3)
  1. VENOFER [Suspect]
     Indication: ANAEMIA
     Dosage: 200 MG INTRAVENOUS
     Route: 042
  2. SOLU-MEDROL [Concomitant]
  3. ASACOL [Concomitant]

REACTIONS (5)
  - CONDITION AGGRAVATED [None]
  - DRUG EXPOSURE DURING PREGNANCY [None]
  - INFLAMMATORY BOWEL DISEASE [None]
  - INTRA-UTERINE DEATH [None]
  - MATERNAL CONDITION AFFECTING FOETUS [None]
